FAERS Safety Report 8778599 (Version 3)
Quarter: 2012Q4

REPORT INFORMATION
  Report Type: 
  Country: JP (occurrence: JP)
  Receive Date: 20120912
  Receipt Date: 20121019
  Transmission Date: 20130627
  Serious: Yes (Other)
  Sender: FDA-Public Use
  Company Number: JP-ROCHE-1124190

PATIENT
  Age: 84 Year
  Sex: Male
  Weight: 53 kg

DRUGS (10)
  1. ACTEMRA [Suspect]
     Indication: RHEUMATOID ARTHRITIS
     Route: 041
     Dates: start: 20110222, end: 20120829
  2. DICLOFENAC SODIUM [Concomitant]
     Indication: PAIN
     Route: 048
     Dates: start: 20050421
  3. MISOPROSTOL [Concomitant]
     Indication: PAIN
     Route: 048
     Dates: start: 20050421
  4. ALENDRONATE SODIUM [Concomitant]
     Indication: OSTEOPOROSIS
     Route: 048
     Dates: start: 20061212
  5. BONALON [Concomitant]
     Indication: OSTEOPOROSIS
     Route: 048
  6. PREMINENT [Concomitant]
     Indication: HYPERTENSION
     Route: 048
  7. SALOBEL [Concomitant]
     Indication: HYPERURICAEMIA
     Route: 048
  8. MEVALOTIN [Concomitant]
     Indication: HYPERLIPIDAEMIA
     Route: 048
  9. CONIEL [Concomitant]
     Indication: HYPERTENSION
     Route: 048
  10. CARDENALIN [Concomitant]
     Indication: HYPERTENSION
     Route: 048

REACTIONS (2)
  - Pleural effusion [Not Recovered/Not Resolved]
  - Lung neoplasm malignant [Not Recovered/Not Resolved]
